FAERS Safety Report 8236097-0 (Version None)
Quarter: 2012Q1

REPORT INFORMATION
  Report Type: 
  Country: None (occurrence: None)
  Receive Date: 20120327
  Receipt Date: 20120316
  Transmission Date: 20120608
  Serious: Yes (Hospitalization)
  Sender: FDA-Public Use
  Company Number: US-BIOGENIDEC-2012BI007346

PATIENT
  Sex: Female

DRUGS (6)
  1. FENTANYL-100 [Concomitant]
     Indication: PAIN
  2. PHENERGAN HCL [Concomitant]
  3. DOXAZOSIN MESYLATE [Concomitant]
     Indication: DYSURIA
  4. TYSABRI [Suspect]
     Indication: MULTIPLE SCLEROSIS
     Route: 042
     Dates: start: 20080723, end: 20111101
  5. LAMOTRGINE [Concomitant]
     Indication: PAIN
  6. MIRTAZAPINE [Concomitant]

REACTIONS (2)
  - PAIN [None]
  - FALL [None]
